FAERS Safety Report 5394930-4 (Version None)
Quarter: 2007Q3

REPORT INFORMATION
  Report Type: 
  Country: None (occurrence: None)
  Receive Date: 20070720
  Receipt Date: 20070709
  Transmission Date: 20080115
  Serious: Yes (Life-Threatening, Hospitalization)
  Sender: FDA-Public Use
  Company Number: L07-USA-02870-01

PATIENT
  Age: 84 Year
  Sex: Female

DRUGS (12)
  1. MEMANTINE HCL [Suspect]
     Indication: DEMENTIA ALZHEIMER'S TYPE
     Dosage: 10 MG BID PO
     Route: 048
  2. DILTIAZEM [Suspect]
     Dosage: 120 MG QD
  3. DONEPEZIL HCL [Suspect]
     Indication: DEMENTIA ALZHEIMER'S TYPE
     Dosage: 5 MG BID
  4. RITALIN [Suspect]
     Indication: FATIGUE
     Dosage: 5 MG QD
  5. RITALIN [Suspect]
     Indication: SOCIAL AVOIDANT BEHAVIOUR
     Dosage: 5 MG QD
  6. METOPROLOL EXTENDED-RELEASE (METOPROLOL) [Concomitant]
  7. SIMVASTATIN [Concomitant]
  8. GEMFIBROZIL [Concomitant]
  9. SPIRONOLACTONE [Concomitant]
  10. THYROXINE ^APS^ (LEVOTHYROXINE SODIUM) [Concomitant]
  11. CONJUGATED ESTROGENS (ESTROGENS CONJUGATED) [Concomitant]
  12. ALPRAZOLAM [Concomitant]

REACTIONS (19)
  - ARTERIOSPASM CORONARY [None]
  - BLOOD CREATINE PHOSPHOKINASE INCREASED [None]
  - CARDIOGENIC SHOCK [None]
  - CHEST PAIN [None]
  - CORONARY ARTERY STENOSIS [None]
  - DIZZINESS [None]
  - DRUG INTERACTION [None]
  - DYSPNOEA [None]
  - EJECTION FRACTION DECREASED [None]
  - ELECTROCARDIOGRAM ST SEGMENT ELEVATION [None]
  - ELECTROCARDIOGRAM ST-T CHANGE [None]
  - FLUSHING [None]
  - HYPERHIDROSIS [None]
  - HYPOTENSION [None]
  - NODAL ARRHYTHMIA [None]
  - PERIPHERAL COLDNESS [None]
  - PRESYNCOPE [None]
  - PULMONARY OEDEMA [None]
  - SINUS BRADYCARDIA [None]
